FAERS Safety Report 5945437-4 (Version None)
Quarter: 2008Q4

REPORT INFORMATION
  Report Type: 
  Country: None (occurrence: None)
  Receive Date: 20081107
  Receipt Date: 20081104
  Transmission Date: 20090506
  Serious: Yes (Hospitalization, Other)
  Sender: FDA-Public Use
  Company Number: GB-ABBOTT-08P-167-0485650-00

PATIENT
  Age: 69 Year
  Sex: Male
  Weight: 121 kg

DRUGS (2)
  1. REDUCTIL 10MG [Suspect]
     Indication: OBESITY
     Dates: start: 20031104, end: 20081007
  2. ETANERCEPT [Concomitant]
     Indication: DRUG USE FOR UNKNOWN INDICATION

REACTIONS (2)
  - ATRIAL FIBRILLATION [None]
  - ATRIAL FLUTTER [None]
